FAERS Safety Report 6585375-X (Version None)
Quarter: 2010Q1

REPORT INFORMATION
  Report Type: 
  Country: None (occurrence: None)
  Receive Date: 20100217
  Receipt Date: 20100210
  Transmission Date: 20100710
  Serious: Yes (Death, Hospitalization, Other)
  Sender: FDA-Public Use
  Company Number: FR-CELGENEUS-056-21880-09121514

PATIENT
  Sex: Male
  Weight: 74 kg

DRUGS (17)
  1. REVLIMID [Suspect]
     Indication: MULTIPLE MYELOMA
     Route: 048
     Dates: start: 20090701, end: 20090825
  2. REVLIMID [Suspect]
     Dosage: REDUCED DOSE
     Route: 048
     Dates: start: 20090903, end: 20090929
  3. DEXAMETHASONE [Concomitant]
     Indication: MULTIPLE MYELOMA
     Route: 065
     Dates: start: 20090801
  4. DEXAMETHASONE [Concomitant]
  5. EPO [Concomitant]
     Indication: PROPHYLAXIS
     Route: 065
  6. LOVENOX [Concomitant]
     Indication: PROPHYLAXIS
     Route: 065
  7. ALLOPURINOL [Interacting]
     Indication: PROPHYLAXIS
     Route: 065
  8. AUGMENTIN [Concomitant]
     Route: 065
  9. TAVANIC [Interacting]
     Route: 065
  10. CARDENSIEL [Concomitant]
     Indication: VENTRICULAR DYSFUNCTION
     Route: 065
     Dates: start: 20091003
  11. HYDROCORTISONE [Concomitant]
     Indication: DRUG USE FOR UNKNOWN INDICATION
     Dosage: 2 IN MORNING AND 1 AT NOON
     Route: 065
  12. NEXIUM [Concomitant]
     Indication: DRUG USE FOR UNKNOWN INDICATION
     Route: 065
  13. ZALDIAR [Concomitant]
     Indication: DRUG USE FOR UNKNOWN INDICATION
     Route: 065
  14. ZALDIAR [Concomitant]
  15. LEXOMYL [Concomitant]
     Indication: DRUG USE FOR UNKNOWN INDICATION
     Route: 065
  16. GAVISCON [Concomitant]
     Indication: DRUG USE FOR UNKNOWN INDICATION
     Route: 065
  17. BETAGAN [Concomitant]
     Indication: DRUG USE FOR UNKNOWN INDICATION
     Dosage: 0.5-1 DROPS

REACTIONS (12)
  - AFFECTIVE DISORDER [None]
  - ANAEMIA HAEMOLYTIC AUTOIMMUNE [None]
  - ARRHYTHMIA [None]
  - CEREBELLAR ATAXIA [None]
  - COGNITIVE DISORDER [None]
  - CONFUSIONAL STATE [None]
  - DEATH [None]
  - GENERAL PHYSICAL HEALTH DETERIORATION [None]
  - IMMOBILE [None]
  - MENINGITIS [None]
  - MULTIPLE MYELOMA [None]
  - PANCYTOPENIA [None]
